FAERS Safety Report 10849411 (Version 1)
Quarter: 2015Q1

REPORT INFORMATION
  Report Type: Spontaneous
  Country: US (occurrence: US)
  Receive Date: 20150221
  Receipt Date: 20150221
  Transmission Date: 20150721
  Serious: No
  Sender: FDA-Public Use
  Company Number: US-CELGENEUS-163-21880-14045557

PATIENT
  Age: 58 Year
  Sex: Male
  Weight: 127.12 kg

DRUGS (1)
  1. REVLIMID [Suspect]
     Active Substance: LENALIDOMIDE
     Indication: PLASMA CELL MYELOMA
     Dosage: 25 MILLIGRAM
     Route: 048
     Dates: start: 201402

REACTIONS (2)
  - Erectile dysfunction [Not Recovered/Not Resolved]
  - Disturbance in sexual arousal [Unknown]

NARRATIVE: CASE EVENT DATE: 2014
